FAERS Safety Report 4366200-4 (Version None)
Quarter: 2004Q2

REPORT INFORMATION
  Report Type: 
  Country: None (occurrence: None)
  Receive Date: 20040527
  Receipt Date: 20040217
  Transmission Date: 20050107
  Serious: No
  Sender: FDA-Public Use
  Company Number: US-BRISTOL-MYERS SQUIBB COMPANY-12510210

PATIENT
  Sex: Male

DRUGS (1)
  1. DEFINITY [Suspect]
     Dosage: INITIAL DILUTED BOLUS DOSE OF 1 CC WITH AN ADDITIONAL DOSE OF 1 CC
     Dates: start: 20040213, end: 20040213

REACTIONS (2)
  - BACK PAIN [None]
  - MUSCLE SPASMS [None]
